FAERS Safety Report 13805813 (Version 1)
Quarter: 2017Q3

REPORT INFORMATION
  Report Type: Spontaneous
  Country: US (occurrence: US)
  Receive Date: 20170728
  Receipt Date: 20170728
  Transmission Date: 20171127
  Serious: Yes (Hospitalization)
  Sender: FDA-Public Use
  Company Number: US-EISAI MEDICAL RESEARCH-EC-2017-029653

PATIENT
  Age: 31 Year
  Sex: Female

DRUGS (5)
  1. FYCOMPA [Suspect]
     Active Substance: PERAMPANEL
     Indication: PARTIAL SEIZURES
     Route: 048
     Dates: start: 2015
  2. VIMPAT [Concomitant]
     Active Substance: LACOSAMIDE
     Indication: PARTIAL SEIZURES
     Dosage: UNKNOWN
     Route: 065
  3. OXCARBAZEPINE. [Concomitant]
     Active Substance: OXCARBAZEPINE
     Indication: PARTIAL SEIZURES
     Dosage: UNKNOWN
     Route: 065
  4. DILANTIN [Concomitant]
     Active Substance: PHENYTOIN
     Indication: PARTIAL SEIZURES
     Dosage: UNKNOWN
     Route: 065
  5. LEXAPRO [Concomitant]
     Active Substance: ESCITALOPRAM OXALATE
     Indication: PRODUCT USED FOR UNKNOWN INDICATION
     Dosage: UNKNOWN
     Route: 065

REACTIONS (1)
  - Myoclonus [Not Recovered/Not Resolved]

NARRATIVE: CASE EVENT DATE: 20170717
